FAERS Safety Report 7069888-2 (Version None)
Quarter: 2010Q4

REPORT INFORMATION
  Report Type: 
  Country: None (occurrence: None)
  Receive Date: 20101028
  Receipt Date: 20100611
  Transmission Date: 20110411
  Serious: No
  Sender: FDA-Public Use
  Company Number: US-WYE-H15977510

PATIENT
  Sex: Male
  Weight: 99.32 kg

DRUGS (6)
  1. PROTONIX [Suspect]
     Dosage: UNKNOWN
  2. ASPIRIN [Concomitant]
  3. VYTORIN [Concomitant]
  4. PLAVIX [Suspect]
     Indication: ANEURYSM REPAIR
     Route: 048
     Dates: start: 20080101
  5. PLAVIX [Suspect]
     Indication: VASCULAR OPERATION
  6. DIOVAN [Concomitant]

REACTIONS (2)
  - BLOOD DISORDER [None]
  - CONTUSION [None]
